FAERS Safety Report 7020361-7 (Version None)
Quarter: 2010Q3

REPORT INFORMATION
  Report Type: 
  Country: None (occurrence: None)
  Receive Date: 20100927
  Receipt Date: 20100920
  Transmission Date: 20110219
  Serious: Yes (Hospitalization)
  Sender: FDA-Public Use
  Company Number: 017582

PATIENT
  Sex: Female
  Weight: 68 kg

DRUGS (11)
  1. CERTOLIZUMAB PEGOL (CERTOLIZUMAB PEGOL) [Suspect]
     Indication: CROHN'S DISEASE
     Dosage: 400 MG 1X/2 WEEKS, C87085 SUBCUTANEOUS, 400 MG 1X/2 WEEKS SUBCUTANEOUS
     Route: 058
     Dates: end: 20100715
  2. CERTOLIZUMAB PEGOL (CERTOLIZUMAB PEGOL) [Suspect]
     Indication: CROHN'S DISEASE
     Dosage: 400 MG 1X/2 WEEKS, C87085 SUBCUTANEOUS, 400 MG 1X/2 WEEKS SUBCUTANEOUS
     Route: 058
     Dates: start: 20090604
  3. ANUGESIC HC [Concomitant]
  4. CIPROFLOXACIN [Concomitant]
  5. VERSED [Concomitant]
  6. FENTANYL [Concomitant]
  7. FAMOTIDINE [Concomitant]
  8. PREVACID [Concomitant]
  9. VENTOLIN [Concomitant]
  10. TYLENOL-500 [Concomitant]
  11. REACTINE [Concomitant]

REACTIONS (21)
  - ANAL FISSURE [None]
  - ASPIRATION [None]
  - COLONOSCOPY [None]
  - DIARRHOEA INFECTIOUS [None]
  - DYSPEPSIA [None]
  - EAR INFECTION [None]
  - FUNGAL INFECTION [None]
  - INTRACRANIAL VENOUS SINUS THROMBOSIS [None]
  - JUGULAR VEIN THROMBOSIS [None]
  - MASTOIDITIS [None]
  - MENINGITIS [None]
  - NAUSEA [None]
  - OTITIS EXTERNA [None]
  - PLEURAL EFFUSION [None]
  - PNEUMONIA [None]
  - PULMONARY OEDEMA [None]
  - SINUS CONGESTION [None]
  - SINUS POLYP [None]
  - TRANSVERSE SINUS THROMBOSIS [None]
  - URINARY TRACT INFECTION [None]
  - VOMITING [None]
